FAERS Safety Report 10317042 (Version 2)
Quarter: 2015Q1

REPORT INFORMATION
  Report Type: Other
  Country: US (occurrence: US)
  Receive Date: 20140719
  Receipt Date: 20150319
  Transmission Date: 20150720
  Serious: Yes (Hospitalization, Other)
  Sender: FDA-Public Use
  Company Number: US-GSKPPD-2014GSK007618

PATIENT
  Age: 80 Year
  Sex: Male

DRUGS (7)
  1. DEMADEX [Concomitant]
     Active Substance: TORSEMIDE
     Dosage: ? A PILL DAILY
  2. AVANDIA [Suspect]
     Active Substance: ROSIGLITAZONE MALEATE
     Indication: DIABETES MELLITUS
     Dosage: DATES OF AVANDIA USE COULD NOT BE CONFIRMED IN RECORDS REVIEWED.
     Route: 048
  3. LANOXIN [Concomitant]
     Active Substance: DIGOXIN
  4. AVAPRO [Concomitant]
     Active Substance: IRBESARTAN
     Dosage: ? A PILL TWICE A DAY
  5. LIPITOR [Concomitant]
     Active Substance: ATORVASTATIN CALCIUM
  6. ALDACTONE [Concomitant]
     Active Substance: SPIRONOLACTONE
  7. TYLENOL [Concomitant]
     Active Substance: ACETAMINOPHEN

REACTIONS (1)
  - Cardiac failure congestive [Recovered/Resolved]

NARRATIVE: CASE EVENT DATE: 20030825
